FAERS Safety Report 7957583-4 (Version None)
Quarter: 2011Q4

REPORT INFORMATION
  Report Type: 
  Country: None (occurrence: None)
  Receive Date: 20111201
  Receipt Date: 20111121
  Transmission Date: 20120403
  Serious: Yes (Other)
  Sender: FDA-Public Use
  Company Number: IT-2011-2999

PATIENT
  Sex: Female

DRUGS (13)
  1. RABEPRAZOLE SODIUM [Concomitant]
  2. HERCEPTIN [Suspect]
     Indication: BREAST CANCER
     Dosage: 400 MG IV
     Route: 042
     Dates: start: 20110201
  3. LANOXIN [Concomitant]
  4. METFORMIN HCL [Concomitant]
  5. NAVELBINE [Suspect]
     Indication: BREAST CANCER
     Dosage: 30 MG IV
     Route: 042
     Dates: start: 20110217
  6. TRIMETON [Concomitant]
  7. LEVEMIR [Concomitant]
  8. LASIX [Concomitant]
  9. LEVOTHYROXINE SODIUM [Concomitant]
  10. TICLID [Concomitant]
  11. NOVORAPID [Concomitant]
  12. RAMIPRIL [Concomitant]
  13. CARDICOR [Concomitant]

REACTIONS (3)
  - HYPERTENSIVE CRISIS [None]
  - CHILLS [None]
  - TACHYCARDIA [None]
